FAERS Safety Report 5394776-7 (Version None)
Quarter: 2007Q3

REPORT INFORMATION
  Report Type: 
  Country: None (occurrence: None)
  Receive Date: 20070723
  Receipt Date: 20070712
  Transmission Date: 20080115
  Serious: Yes (Hospitalization, Disabling)
  Sender: FDA-Public Use
  Company Number: US-PFIZER INC-2007058410

PATIENT
  Sex: Male

DRUGS (9)
  1. CELEBREX [Suspect]
     Indication: ARTHRITIS
     Dates: start: 19991101, end: 20041101
  2. MORPHINE [Concomitant]
  3. PERCOCET [Concomitant]
  4. TYLENOL (CAPLET) [Concomitant]
  5. AVANDIA [Concomitant]
  6. NEXIUM [Concomitant]
  7. CODEINE SUL TAB [Concomitant]
  8. ADVIL LIQUI-GELS [Concomitant]
  9. ASPIRIN [Concomitant]

REACTIONS (5)
  - BLINDNESS [None]
  - CEREBROVASCULAR ACCIDENT [None]
  - DEPRESSION [None]
  - MYOCARDIAL INFARCTION [None]
  - OESOPHAGEAL ULCER HAEMORRHAGE [None]
